FAERS Safety Report 7972767 (Version 5)
Quarter: 2014Q1

REPORT INFORMATION
  Report Type: Spontaneous
  Country: US (occurrence: US)
  Receive Date: 20110603
  Receipt Date: 20140130
  Transmission Date: 20141002
  Serious: Yes (Hospitalization)
  Sender: FDA-Public Use
  Company Number: US-BAYER-2010-002625

PATIENT
  Age: 42 Year
  Sex: Female
  Weight: 95.24 kg

DRUGS (11)
  1. YASMIN [Suspect]
     Indication: MENORRHAGIA
     Dosage: UNK
     Dates: start: 2006, end: 2010
  2. YAZ [Suspect]
     Indication: MENORRHAGIA
     Dosage: UNK
     Dates: start: 2006, end: 2010
  3. ALBUTEROL [Concomitant]
     Dosage: UNK
  4. LIPITOR [Concomitant]
     Dosage: UNK
  5. OMEPRAZOLE [Concomitant]
     Indication: GASTROOESOPHAGEAL REFLUX DISEASE
     Dosage: UNK
     Dates: start: 2000
  6. SINGULAIR [Concomitant]
     Indication: SEASONAL ALLERGY
     Dosage: UNK
     Dates: start: 2005
  7. ZYRTEC [Concomitant]
     Indication: MULTIPLE ALLERGIES
     Dosage: UNK
     Dates: start: 2005
  8. CYMBALTA [Concomitant]
     Indication: MAJOR DEPRESSION
  9. CYMBALTA [Concomitant]
     Indication: GENERALISED ANXIETY DISORDER
  10. CYMBALTA [Concomitant]
     Indication: FIBROMYALGIA
  11. CYTOTEC [Concomitant]
     Dosage: 200 ?G, BID
     Route: 048

REACTIONS (4)
  - Cholecystitis [None]
  - Constipation [None]
  - Diarrhoea [None]
  - Cholecystitis chronic [None]
